FAERS Safety Report 8398121-4 (Version None)
Quarter: 2012Q2

REPORT INFORMATION
  Report Type: 
  Country: None (occurrence: None)
  Receive Date: 20120531
  Receipt Date: 20120529
  Transmission Date: 20120825
  Serious: No
  Sender: FDA-Public Use
  Company Number: DE-SANOFI-AVENTIS-2012SA037800

PATIENT
  Age: 36 Year
  Sex: Female

DRUGS (2)
  1. MULTAQ [Suspect]
     Route: 048
  2. ACETYLCYSTEINE [Interacting]
     Route: 048
     Dates: start: 20120101, end: 20120101

REACTIONS (2)
  - DRUG INTERACTION [None]
  - BLOOD CREATININE INCREASED [None]
